FAERS Safety Report 21501414 (Version 1)
Quarter: 2022Q4

REPORT INFORMATION
  Report Type: Spontaneous
  Country: CN (occurrence: CN)
  Receive Date: 20221025
  Receipt Date: 20221025
  Transmission Date: 20230113
  Serious: Yes (Other)
  Sender: FDA-Public Use
  Company Number: CN-AMGEN-CHNSP2022180325

PATIENT
  Age: 60 Year
  Sex: Male

DRUGS (5)
  1. XGEVA [Suspect]
     Active Substance: DENOSUMAB
     Indication: Lung neoplasm malignant
     Dosage: 120 MILLIGRAM 1 DAY
     Route: 058
     Dates: start: 20220829, end: 20220829
  2. PEMETREXED [Suspect]
     Active Substance: PEMETREXED
     Indication: Lung neoplasm malignant
     Dosage: 0.8 GRAM 1 DAY
     Route: 040
     Dates: start: 20220822, end: 20220822
  3. PARAPLATIN [Suspect]
     Active Substance: CARBOPLATIN
     Indication: Lung neoplasm malignant
     Dosage: 500 MILLIGRAM 1 DAY
     Route: 040
     Dates: start: 20220822, end: 20220822
  4. SODIUM CHLORIDE [Concomitant]
     Active Substance: SODIUM CHLORIDE
     Dosage: (0.9% INTRAVENOUS)
  5. FILGRASTIM [Concomitant]
     Active Substance: FILGRASTIM

REACTIONS (1)
  - Myelosuppression [Recovering/Resolving]

NARRATIVE: CASE EVENT DATE: 20220905
